FAERS Safety Report 6673207-0 (Version None)
Quarter: 2010Q2

REPORT INFORMATION
  Report Type: 
  Country: None (occurrence: None)
  Receive Date: 20100408
  Receipt Date: 20100331
  Transmission Date: 20101027
  Serious: Yes (Hospitalization, Disabling, Other)
  Sender: FDA-Public Use
  Company Number: US-MERCK-0907USA04414

PATIENT
  Age: 53 Year
  Sex: Female
  Weight: 57 kg

DRUGS (3)
  1. FOSAMAX [Suspect]
     Indication: OSTEOPENIA
     Route: 048
     Dates: start: 19960801, end: 20070101
  2. FOSAMAX [Suspect]
     Route: 048
     Dates: end: 19970301
  3. FOSAMAX PLUS D [Suspect]
     Indication: OSTEOPENIA
     Route: 048
     Dates: start: 19960801, end: 20070101

REACTIONS (31)
  - ADVERSE EVENT [None]
  - ANXIETY [None]
  - ARTHRALGIA [None]
  - COCCYDYNIA [None]
  - DENTAL CARIES [None]
  - DEPRESSION [None]
  - DYSPEPSIA [None]
  - FEMUR FRACTURE [None]
  - GASTROOESOPHAGEAL REFLUX DISEASE [None]
  - GLUCOSE TOLERANCE TEST ABNORMAL [None]
  - HYPERGLYCAEMIA [None]
  - HYPERLIPIDAEMIA [None]
  - IMPAIRED HEALING [None]
  - INTERVERTEBRAL DISC DEGENERATION [None]
  - KYPHOSIS [None]
  - LIGAMENT SPRAIN [None]
  - LIVER FUNCTION TEST ABNORMAL [None]
  - MUSCLE STRAIN [None]
  - ORAL INFECTION [None]
  - ORAL PAIN [None]
  - OSTEOARTHRITIS [None]
  - PAIN IN EXTREMITY [None]
  - RADICULOPATHY [None]
  - RIB FRACTURE [None]
  - SCIATICA [None]
  - SCOLIOSIS [None]
  - SINUSITIS [None]
  - STRESS FRACTURE [None]
  - TACHYCARDIA [None]
  - TOOTH DISORDER [None]
  - VITAMIN D DECREASED [None]
